FAERS Safety Report 26072051 (Version 1)
Quarter: 2025Q4

REPORT INFORMATION
  Report Type: Spontaneous
  Country: US (occurrence: US)
  Receive Date: 20251120
  Receipt Date: 20251120
  Transmission Date: 20260118
  Serious: Yes (Hospitalization, Other)
  Sender: NOVO NORDISK
  Company Number: US-NOVOPROD-1564931

PATIENT
  Age: 79 Year
  Sex: Female

DRUGS (3)
  1. OZEMPIC [Suspect]
     Active Substance: SEMAGLUTIDE
     Indication: Type 2 diabetes mellitus
     Dosage: 0.25 MG, QW
     Route: 058
     Dates: start: 20251028
  2. LANTUS SOLOSTAR [Concomitant]
     Active Substance: INSULIN GLARGINE
     Indication: Type 2 diabetes mellitus
     Dosage: 16 IU, QD (AT NIGHT)
     Dates: start: 198511
  3. ASPIRINE MERCK [Concomitant]
     Indication: Thrombosis
     Dosage: 81 MG, QD
     Dates: start: 2018

REACTIONS (2)
  - Cognitive disorder [Recovered/Resolved]
  - Physiotherapy [Recovered/Resolved]

NARRATIVE: CASE EVENT DATE: 20251111
